FAERS Safety Report 7024351-X (Version None)
Quarter: 2010Q4

REPORT INFORMATION
  Report Type: 
  Country: None (occurrence: None)
  Receive Date: 20101001
  Receipt Date: 20100928
  Transmission Date: 20110411
  Serious: Yes (Life-Threatening, Hospitalization)
  Sender: FDA-Public Use
  Company Number: HU-AMGEN-KDC441671

PATIENT
  Age: 74 Year
  Sex: Male

DRUGS (3)
  1. VECTIBIX [Suspect]
     Indication: COLORECTAL CANCER
     Route: 042
     Dates: start: 20100412
  2. XELODA [Suspect]
     Route: 048
     Dates: start: 20100419
  3. RADIATION THERAPY [Suspect]
     Dates: start: 20100419

REACTIONS (2)
  - ABDOMINAL ABSCESS [None]
  - INTESTINAL ANASTOMOSIS COMPLICATION [None]
